FAERS Safety Report 9822066 (Version 1)
Quarter: 2014Q1

REPORT INFORMATION
  Report Type: Spontaneous
  Country: SG (occurrence: SG)
  Receive Date: 20140116
  Receipt Date: 20140116
  Transmission Date: 20141002
  Serious: Yes (Hospitalization, Other)
  Sender: FDA-Public Use
  Company Number: PHHY2014SG002578

PATIENT
  Sex: Male

DRUGS (15)
  1. METHOTREXATE [Suspect]
     Indication: PSORIASIS
     Dates: start: 201108
  2. FOLIC ACID [Concomitant]
     Indication: MANIA
     Dates: start: 201108
  3. LITHIUM [Concomitant]
     Indication: MANIA
     Dates: start: 2010
  4. BETAMETHASONE [Concomitant]
     Indication: PSORIASIS
  5. HYDROCORTISONE [Concomitant]
     Indication: PSORIASIS
  6. CLIOQUINOL [Concomitant]
     Indication: PSORIASIS
  7. COAL TAR [Concomitant]
     Indication: PSORIASIS
  8. QUETIAPINE [Concomitant]
     Indication: MANIA
     Dosage: 400 MG, DAILY
     Dates: end: 201112
  9. QUETIAPINE [Concomitant]
     Dosage: 200 MG, DAILY
  10. QUETIAPINE [Concomitant]
     Dosage: 600 MG, DAILY
  11. CARBAMAZEPINE [Concomitant]
     Indication: MANIA
     Dosage: 400 MG, DAILY
     Dates: end: 201112
  12. CARBAMAZEPINE [Concomitant]
     Dosage: 200 MG, DAILY
  13. CARBAMAZEPINE [Concomitant]
     Dosage: 600 MG, DAILY
  14. OLANZAPINE [Concomitant]
     Indication: MANIA
  15. VALPROIC ACID [Concomitant]
     Indication: MANIA

REACTIONS (3)
  - Mental disorder [Unknown]
  - Mania [Unknown]
  - Psoriasis [Unknown]
